FAERS Safety Report 5702689-3 (Version None)
Quarter: 2008Q2

REPORT INFORMATION
  Report Type: 
  Country: None (occurrence: None)
  Receive Date: 20080411
  Receipt Date: 20080402
  Transmission Date: 20081010
  Serious: Yes (Other)
  Sender: FDA-Public Use
  Company Number: US-JNJFOC-20080400714

PATIENT
  Sex: Female
  Weight: 68.04 kg

DRUGS (7)
  1. REMICADE [Suspect]
     Indication: PSORIATIC ARTHROPATHY
     Route: 042
  2. METHOTREXATE [Concomitant]
     Indication: PSORIATIC ARTHROPATHY
  3. ACTONEL [Concomitant]
  4. FOLIC ACID [Concomitant]
  5. ADVAIR HFA [Concomitant]
  6. NAPROXEN [Concomitant]
  7. ESTROGEN [Concomitant]

REACTIONS (1)
  - BREAST CANCER [None]
